FAERS Safety Report 7411336-4 (Version None)
Quarter: 2011Q2

REPORT INFORMATION
  Report Type: 
  Country: None (occurrence: None)
  Receive Date: 20110413
  Receipt Date: 20110405
  Transmission Date: 20111010
  Serious: Yes (Death, Life-Threatening, Hospitalization)
  Sender: FDA-Public Use
  Company Number: FR-SANOFI-AVENTIS-2011SA021260

PATIENT
  Age: 74 Year
  Sex: Female

DRUGS (3)
  1. LASIX [Suspect]
     Route: 048
  2. ESIDRIX [Suspect]
     Route: 048
  3. ALDACTONE [Concomitant]

REACTIONS (5)
  - ARRHYTHMIA [None]
  - HYPOKALAEMIA [None]
  - VENTRICULAR FIBRILLATION [None]
  - ELECTROCARDIOGRAM QT PROLONGED [None]
  - VENTRICULAR EXTRASYSTOLES [None]
